FAERS Safety Report 4355320-6 (Version None)
Quarter: 2004Q2

REPORT INFORMATION
  Report Type: 
  Country: None (occurrence: None)
  Receive Date: 20040505
  Receipt Date: 20040421
  Transmission Date: 20050107
  Serious: Yes (Death)
  Sender: FDA-Public Use
  Company Number: BE-JNJFOC-20040306599

PATIENT
  Age: 33 Year
  Sex: Male

DRUGS (1)
  1. CISAPRIDE (CISAPRIDE) TABLETS [Suspect]
     Indication: IMPAIRED GASTRIC EMPTYING
     Dosage: 10 MG, 4 IN 1 DAY
     Dates: start: 20030508, end: 20040203

REACTIONS (6)
  - ACIDOSIS [None]
  - BRONCHOPNEUMONIA [None]
  - PANCREATIC ATROPHY [None]
  - PNEUMONIA [None]
  - SEPTIC SHOCK [None]
  - SPLEEN CONGESTION [None]
